FAERS Safety Report 13233872 (Version 1)
Quarter: 2017Q1

REPORT INFORMATION
  Report Type: Report from Study
  Country: US (occurrence: US)
  Receive Date: 20170215
  Receipt Date: 20170215
  Transmission Date: 20170428
  Serious: Yes (Other)
  Sender: FDA-Public Use
  Company Number: US-ROCHE-1892831

PATIENT
  Age: 39 Year
  Sex: Female
  Weight: 79.45 kg

DRUGS (4)
  1. LUCENTIS [Suspect]
     Active Substance: RANIBIZUMAB
     Indication: MACULAR OEDEMA
  2. LUCENTIS [Suspect]
     Active Substance: RANIBIZUMAB
     Indication: DIABETIC RETINOPATHY
  3. LUCENTIS [Suspect]
     Active Substance: RANIBIZUMAB
     Indication: RETINOPATHY
     Dosage: EVERY 2 TO 3 WEEKS ALTERNATING EYES ;ONGOING: YES
     Route: 065
     Dates: start: 201602
  4. LUCENTIS [Suspect]
     Active Substance: RANIBIZUMAB
     Indication: TYPE 1 DIABETES MELLITUS

REACTIONS (6)
  - Neuropathic arthropathy [Unknown]
  - Tunnel vision [Not Recovered/Not Resolved]
  - Eye haemorrhage [Not Recovered/Not Resolved]
  - Blindness unilateral [Recovered/Resolved]
  - Eye haemorrhage [Unknown]
  - Eye haemorrhage [Unknown]

NARRATIVE: CASE EVENT DATE: 201610
